FAERS Safety Report 13374898 (Version 1)
Quarter: 2017Q1

REPORT INFORMATION
  Report Type: Spontaneous
  Country: US (occurrence: US)
  Receive Date: 20170327
  Receipt Date: 20170327
  Transmission Date: 20170429
  Serious: Yes (Hospitalization)
  Sender: FDA-Public Use
  Company Number: US-VIFOR (INTERNATIONAL) INC.-VIT-2017-02892

PATIENT
  Age: 69 Year
  Sex: Male

DRUGS (23)
  1. FEROSUL [Concomitant]
  2. FLONASE [Concomitant]
     Active Substance: FLUTICASONE PROPIONATE
  3. MAG64 [Concomitant]
  4. OMEPRAZOLE. [Concomitant]
     Active Substance: OMEPRAZOLE
  5. PROBENECID. [Concomitant]
     Active Substance: PROBENECID
  6. VELTASSA [Suspect]
     Active Substance: PATIROMER
     Indication: HYPERKALAEMIA
     Route: 048
     Dates: start: 20160617, end: 2017
  7. LEVODOPA/CARBIDOPA [Concomitant]
  8. MAGNESIUM [Concomitant]
     Active Substance: MAGNESIUM
  9. SINEMET [Concomitant]
     Active Substance: CARBIDOPA\LEVODOPA
  10. ACETYLSALICYLIC ACID [Concomitant]
     Active Substance: ASPIRIN
  11. CALCIUM ACETATE. [Concomitant]
     Active Substance: CALCIUM ACETATE
  12. GABAPENTIN. [Concomitant]
     Active Substance: GABAPENTIN
  13. LASIX [Concomitant]
     Active Substance: FUROSEMIDE
  14. AMARYL [Concomitant]
     Active Substance: GLIMEPIRIDE
  15. AMITRIPTYLINE HYDROCHLORIDE. [Concomitant]
     Active Substance: AMITRIPTYLINE HYDROCHLORIDE
  16. COLCHICINE. [Concomitant]
     Active Substance: COLCHICINE
  17. FUROSEMIDE. [Concomitant]
     Active Substance: FUROSEMIDE
  18. GLIPIZIDE. [Concomitant]
     Active Substance: GLIPIZIDE
  19. PAXIL [Concomitant]
     Active Substance: PAROXETINE HYDROCHLORIDE
  20. PAROXETINE HYDROCHLORIDE. [Concomitant]
     Active Substance: PAROXETINE HYDROCHLORIDE
  21. FERROUS SULFATE. [Concomitant]
     Active Substance: FERROUS SULFATE
  22. LEVOTHYROXINE SODIUM. [Concomitant]
     Active Substance: LEVOTHYROXINE SODIUM
  23. ZYRTEC [Concomitant]
     Active Substance: CETIRIZINE HYDROCHLORIDE

REACTIONS (2)
  - Surgery [Unknown]
  - Localised infection [Unknown]

NARRATIVE: CASE EVENT DATE: 20170306
